FAERS Safety Report 4355650-8 (Version None)
Quarter: 2004Q2

REPORT INFORMATION
  Report Type: 
  Country: None (occurrence: None)
  Receive Date: 20040510
  Receipt Date: 20040421
  Transmission Date: 20050107
  Serious: Yes (Hospitalization)
  Sender: FDA-Public Use
  Company Number: JP-BRISTOL-MYERS SQUIBB COMPANY-12572244

PATIENT
  Age: 87 Year
  Sex: Female

DRUGS (6)
  1. GATIFLO TABS 100 MG [Suspect]
     Indication: BRONCHITIS ACUTE
     Route: 048
     Dates: start: 20040408, end: 20040409
  2. CLARITH [Suspect]
     Indication: BRONCHITIS ACUTE
     Route: 048
     Dates: start: 20040406, end: 20040409
  3. PULMICORT [Concomitant]
     Route: 055
     Dates: start: 20021010
  4. SEREVENT [Concomitant]
     Route: 055
     Dates: start: 20031025
  5. PREDNISOLONE [Concomitant]
     Route: 048
     Dates: start: 20040406
  6. NU-LOTAN [Concomitant]
     Route: 048
     Dates: start: 20001116

REACTIONS (2)
  - ASTHENIA [None]
  - DISORIENTATION [None]
